FAERS Safety Report 6443288-8 (Version None)
Quarter: 2009Q4

REPORT INFORMATION
  Report Type: 
  Country: None (occurrence: None)
  Receive Date: 20091112
  Receipt Date: 20091029
  Transmission Date: 20100525
  Serious: Yes (Hospitalization)
  Sender: FDA-Public Use
  Company Number: 1000009478

PATIENT
  Age: 85 Year
  Sex: Female

DRUGS (7)
  1. ESCITALOPRAM [Suspect]
     Indication: DEPRESSION
     Dosage: 10 MG (10 MG, 1 IN 1 D, ORAL)
     Route: 048
     Dates: start: 20090921
  2. GLUCOPHAGE [Concomitant]
  3. LORAZEPAM [Concomitant]
  4. LEVOTHYROXINE SODIUM [Concomitant]
  5. TANAKAN [Concomitant]
  6. ALDACTONE [Concomitant]
  7. DAFALGAN [Concomitant]

REACTIONS (14)
  - BLOOD PRESSURE SYSTOLIC INCREASED [None]
  - BLOOD SODIUM DECREASED [None]
  - BUNDLE BRANCH BLOCK LEFT [None]
  - CEREBRAL ATROPHY [None]
  - CONFUSIONAL STATE [None]
  - CULTURE URINE POSITIVE [None]
  - DISORIENTATION [None]
  - ESCHERICHIA INFECTION [None]
  - HAPTOGLOBIN INCREASED [None]
  - HYPONATRAEMIA [None]
  - MALAISE [None]
  - MALNUTRITION [None]
  - ORTHOSTATIC HYPOTENSION [None]
  - PYREXIA [None]
